FAERS Safety Report 22068134 (Version 1)
Quarter: 2023Q1

REPORT INFORMATION
  Report Type: Report from Study
  Country: US (occurrence: None)
  Receive Date: 20230307
  Receipt Date: 20230307
  Transmission Date: 20230418
  Serious: Yes (Death)
  Sender: FDA-Public Use
  Company Number: 2023A053528

PATIENT
  Age: 28647 Day
  Sex: Male
  Weight: 82.6 kg

DRUGS (8)
  1. CALQUENCE [Suspect]
     Active Substance: ACALABRUTINIB
     Indication: Chronic lymphocytic leukaemia
     Route: 048
  2. CYANOCOBALAMIN [Concomitant]
     Active Substance: CYANOCOBALAMIN
  3. GABAPENTIN [Concomitant]
     Active Substance: GABAPENTIN
  4. METOPROLOL [Concomitant]
     Active Substance: METOPROLOL
  5. HERBALS\SAW PALMETTO [Concomitant]
     Active Substance: HERBALS\SAW PALMETTO
  6. SIMVASTATIN [Concomitant]
     Active Substance: SIMVASTATIN
  7. MELATONIN [Concomitant]
     Active Substance: MELATONIN
  8. ASPIRIN [Concomitant]
     Active Substance: ASPIRIN

REACTIONS (1)
  - Death [Fatal]

NARRATIVE: CASE EVENT DATE: 20230226
